FAERS Safety Report 6610724 (Version 30)
Quarter: 2013Q4

REPORT INFORMATION
  Report Type: Spontaneous
  Country: US (occurrence: US)
  Receive Date: 20080410
  Receipt Date: 20131121
  Transmission Date: 20140711
  Serious: Yes (Hospitalization, Other)
  Sender: FDA-Public Use
  Company Number: PHEH2008US03330

PATIENT
  Sex: Female

DRUGS (31)
  1. ZOMETA [Suspect]
     Indication: METASTASES TO BONE
     Dosage: 4 MG,
     Route: 042
     Dates: start: 2001, end: 200603
  2. ZOMETA [Suspect]
     Indication: BREAST CANCER METASTATIC
  3. HERCEPTIN [Suspect]
  4. RADIATION TREATMENT [Concomitant]
  5. SEROQUEL [Concomitant]
  6. VENLAFAXINE [Concomitant]
  7. XANAX [Concomitant]
  8. LIDOCAINE [Concomitant]
  9. WELLBUTRIN [Concomitant]
  10. CYMBALTA [Concomitant]
  11. CHEMOTHERAPEUTICS NOS [Concomitant]
  12. HERCEPTIN ^GENENTECH^ [Concomitant]
  13. MS CONTIN [Concomitant]
  14. MSIR [Concomitant]
  15. CIPRO ^MILES^ [Concomitant]
     Dosage: 500 MG, BID
  16. ZOLOFT (SERTRALINE HYDROCHLORIDE) [Concomitant]
  17. HYDROCODONE [Concomitant]
  18. UNASYN [Concomitant]
  19. CHLORHEXIDINE [Concomitant]
  20. SKELAXIN [Concomitant]
  21. LORATAB [Concomitant]
  22. ATIVAN [Concomitant]
  23. PROMETHAZINE [Concomitant]
  24. ALPRAZOLAM [Concomitant]
  25. PENICILLIN [Concomitant]
  26. BACTRIM [Concomitant]
  27. PERCOCET [Concomitant]
  28. TORADOL [Concomitant]
  29. ADVIL [Concomitant]
  30. FIORICET [Concomitant]
  31. ADRIAMYCIN [Concomitant]

REACTIONS (109)
  - Migraine with aura [Unknown]
  - Generalised anxiety disorder [Unknown]
  - Cardiomyopathy [Unknown]
  - Depression [Unknown]
  - Urinary tract infection [Unknown]
  - Pneumonia [Unknown]
  - Chronic obstructive pulmonary disease [Unknown]
  - Bronchitis [Unknown]
  - Rib fracture [Unknown]
  - Lung infiltration [Unknown]
  - Osteonecrosis of jaw [Unknown]
  - Angiopathy [Unknown]
  - General physical health deterioration [Unknown]
  - Pain [Unknown]
  - Infection [Unknown]
  - Anxiety [Unknown]
  - Toothache [Unknown]
  - Pain in jaw [Unknown]
  - Bone disorder [Unknown]
  - Tooth loss [Unknown]
  - Osteitis [Not Recovered/Not Resolved]
  - Periodontal disease [Unknown]
  - Superinfection [Unknown]
  - Loose tooth [Unknown]
  - Neoplasm progression [Unknown]
  - Malignant neoplasm progression [Unknown]
  - Ejection fraction decreased [Unknown]
  - Headache [Unknown]
  - Bowel movement irregularity [Unknown]
  - Musculoskeletal pain [Unknown]
  - Cough [Unknown]
  - Pain in extremity [Unknown]
  - Ear pain [Unknown]
  - Positron emission tomogram abnormal [Unknown]
  - Red blood cell sedimentation rate increased [Unknown]
  - Attention deficit/hyperactivity disorder [Unknown]
  - Mouth ulceration [Unknown]
  - Nervousness [Unknown]
  - Dyspnoea [Unknown]
  - Micturition urgency [Unknown]
  - Otitis media [Unknown]
  - Rhinitis allergic [Unknown]
  - Periodontitis [Unknown]
  - Dental caries [Unknown]
  - Chronic fatigue syndrome [Unknown]
  - Tympanic membrane disorder [Unknown]
  - Hypokinesia [Unknown]
  - Back pain [Unknown]
  - Fall [Unknown]
  - Jaw disorder [Unknown]
  - Arthralgia [Unknown]
  - Purulent discharge [Unknown]
  - Osteolysis [Unknown]
  - Cellulitis [Unknown]
  - Soft tissue disorder [Unknown]
  - Vitamin D deficiency [Unknown]
  - Superior vena cava syndrome [Unknown]
  - Atelectasis [Unknown]
  - Hypotension [Unknown]
  - Osteomyelitis [Unknown]
  - Osteoporosis [Unknown]
  - Osteoarthritis [Unknown]
  - Ventricular dysfunction [Recovering/Resolving]
  - Blood urea nitrogen/creatinine ratio increased [Unknown]
  - Blood glucose increased [Unknown]
  - Gingivitis [Unknown]
  - Inflammation [Unknown]
  - Osteonecrosis [Unknown]
  - Haematuria [Unknown]
  - Lung infection [Unknown]
  - Jaw cyst [Unknown]
  - Arteriosclerosis [Unknown]
  - Aortic calcification [Unknown]
  - Emphysema [Unknown]
  - Pleural fibrosis [Unknown]
  - Pulmonary fibrosis [Unknown]
  - Coronary artery disease [Unknown]
  - Spinal osteoarthritis [Unknown]
  - Cyanosis [Unknown]
  - Mental status changes [Unknown]
  - Alcohol poisoning [Unknown]
  - Head injury [Unknown]
  - Palpitations [Unknown]
  - Rales [Unknown]
  - Asthenia [Unknown]
  - Pyrexia [Unknown]
  - Dizziness [Unknown]
  - Sinusitis [Unknown]
  - Cystitis [Unknown]
  - Self-injurious ideation [Unknown]
  - Sinus tachycardia [Unknown]
  - Breast fibrosis [Unknown]
  - Hypertension [Unknown]
  - Tenderness [Unknown]
  - Exostosis [Unknown]
  - Dental necrosis [Unknown]
  - Cyst [Unknown]
  - Nasal septum deviation [Unknown]
  - Chest pain [Unknown]
  - Conjunctivitis bacterial [Unknown]
  - Conjunctivitis [Unknown]
  - Ear congestion [Unknown]
  - Oropharyngeal pain [Unknown]
  - Upper-airway cough syndrome [Unknown]
  - Lymphoid tissue hyperplasia [Unknown]
  - Pharyngeal erythema [Unknown]
  - Nasal turbinate hypertrophy [Unknown]
  - Chronic sinusitis [Unknown]
  - Deafness neurosensory [Unknown]
